FAERS Safety Report 4380186-8 (Version None)
Quarter: 2004Q2

REPORT INFORMATION
  Report Type: 
  Country: None (occurrence: None)
  Receive Date: 20040601
  Receipt Date: 20040325
  Transmission Date: 20050107
  Serious: No
  Sender: FDA-Public Use
  Company Number: WAES 0305USA02337

PATIENT
  Age: 58 Year
  Sex: Female
  Weight: 65.7716 kg

DRUGS (10)
  1. ZETIA [Suspect]
     Indication: BLOOD CHOLESTEROL INCREASED
     Dosage: 10 MG/DAILY/PO
     Route: 048
     Dates: start: 20021212, end: 20030501
  2. AMICAR [Concomitant]
  3. BEXTRA [Concomitant]
  4. FOSAMAX [Concomitant]
  5. PRAVACHOL [Concomitant]
  6. STIMATE [Concomitant]
  7. SYNTHROID [Concomitant]
  8. FOLIC ACID [Concomitant]
  9. PHENOBARBITAL TAB [Concomitant]
  10. MULTIVITAMIN [Concomitant]

REACTIONS (5)
  - AGEUSIA [None]
  - ANOSMIA [None]
  - DEPRESSION [None]
  - EYE SWELLING [None]
  - WEIGHT INCREASED [None]
